FAERS Safety Report 4676728-5 (Version None)
Quarter: 2005Q2

REPORT INFORMATION
  Report Type: 
  Country: None (occurrence: None)
  Receive Date: 20050527
  Receipt Date: 20050519
  Transmission Date: 20051028
  Serious: Yes (Other)
  Sender: FDA-Public Use
  Company Number: NL-ABBOTT-05P-114-0300912-00

PATIENT
  Sex: Male

DRUGS (4)
  1. KLACID SR [Suspect]
     Indication: PNEUMONIA
     Route: 048
     Dates: start: 20050314, end: 20050321
  2. SILDENAFIL CITRATE [Interacting]
     Indication: ERECTILE DYSFUNCTION
     Route: 065
  3. BUDESONIDE [Concomitant]
     Indication: DRUG USE FOR UNKNOWN INDICATION
     Route: 065
  4. FORMOTEROL [Concomitant]
     Indication: DRUG USE FOR UNKNOWN INDICATION
     Route: 065

REACTIONS (3)
  - ATRIAL FIBRILLATION [None]
  - ATRIAL FLUTTER [None]
  - DRUG INTERACTION [None]
